FAERS Safety Report 8262877-1 (Version None)
Quarter: 2012Q2

REPORT INFORMATION
  Report Type: 
  Country: None (occurrence: None)
  Receive Date: 20120405
  Receipt Date: 20120326
  Transmission Date: 20120825
  Serious: Yes (Hospitalization)
  Sender: FDA-Public Use
  Company Number: US-GLAXOSMITHKLINE-A0971911A

PATIENT
  Age: 78 Year
  Sex: Male
  Weight: 83.9 kg

DRUGS (12)
  1. PLAVIX [Concomitant]
     Dosage: 75MG PER DAY
  2. ADVAIR DISKUS 100/50 [Concomitant]
     Route: 055
  3. SPIRONOLACTONE [Concomitant]
     Dosage: 100MG PER DAY
  4. PANTOPRAZOLE [Concomitant]
     Dosage: 40MG PER DAY
  5. TYLENOL ARTHRITIS [Concomitant]
     Dosage: 2TAB AS REQUIRED
  6. DEMADEX [Concomitant]
     Dosage: 40MG TWICE PER DAY
  7. PROVENTIL [Concomitant]
     Dosage: 2PUFF AS REQUIRED
     Route: 055
  8. NOVOLOG [Concomitant]
     Dosage: 13UNIT PER DAY
  9. SPIRIVA [Concomitant]
     Dosage: 18MCG PER DAY
     Route: 055
  10. TRACLEER [Concomitant]
     Dosage: 125MG TWICE PER DAY
  11. CRESTOR [Concomitant]
     Dosage: 20MG PER DAY
  12. FLOLAN [Suspect]
     Indication: PULMONARY ARTERIAL HYPERTENSION
     Dosage: 31.25NGKM SEE DOSAGE TEXT
     Route: 042
     Dates: start: 20080117

REACTIONS (6)
  - OEDEMA PERIPHERAL [None]
  - INFUSION SITE SWELLING [None]
  - DEVICE ALARM ISSUE [None]
  - ERYTHEMA [None]
  - DYSPNOEA [None]
  - MEDICAL DEVICE COMPLICATION [None]
